FAERS Safety Report 15249611 (Version 1)
Quarter: 2018Q3

REPORT INFORMATION
  Report Type: Spontaneous
  Country: US (occurrence: US)
  Receive Date: 20180807
  Receipt Date: 20180807
  Transmission Date: 20181010
  Serious: No
  Sender: FDA-Public Use
  Company Number: US-PERRIGO-18US005930

PATIENT
  Age: 76 Year
  Sex: Female
  Weight: 78.46 kg

DRUGS (14)
  1. TYLENOL [Concomitant]
     Active Substance: ACETAMINOPHEN
     Indication: PAIN
     Dosage: UNKNOWN, QID
     Route: 065
  2. RALOXIFENE. [Concomitant]
     Active Substance: RALOXIFENE
     Indication: ROUTINE HEALTH MAINTENANCE
  3. METAMUCIL                          /00091301/ [Concomitant]
     Active Substance: PSYLLIUM HUSK
     Indication: SUPPLEMENTATION THERAPY
     Dosage: UNK
     Route: 065
  4. REFRESH CLASSIC LUCRICANT EYE DROPS [Concomitant]
     Indication: DRY EYE
     Dosage: UNK
     Route: 065
  5. VSL#3 [Concomitant]
     Active Substance: PROBIOTICS NOS
     Indication: PROBIOTIC THERAPY
     Dosage: UNK
     Route: 065
  6. IMODIUM [Concomitant]
     Active Substance: LOPERAMIDE HYDROCHLORIDE
     Indication: DIARRHOEA
     Dosage: UNK
     Route: 065
  7. RALOXIFENE. [Concomitant]
     Active Substance: RALOXIFENE
     Indication: MENOPAUSE
     Dosage: UNK
     Route: 065
  8. LORATADINE. [Suspect]
     Active Substance: LORATADINE
     Indication: SINUS CONGESTION
  9. LORATADINE. [Suspect]
     Active Substance: LORATADINE
     Indication: SINUS DISORDER
     Dosage: 10 MG, QD
     Route: 048
     Dates: start: 20180528, end: 20180531
  10. IRON [Concomitant]
     Active Substance: IRON
     Indication: ANAEMIA
     Dosage: UNK
     Route: 065
  11. LACTAID [Concomitant]
     Active Substance: LACTASE
     Indication: LACTOSE INTOLERANCE
     Dosage: UNK
     Route: 065
  12. VITAMIN D                          /00107901/ [Concomitant]
     Active Substance: ERGOCALCIFEROL
     Indication: SUPPLEMENTATION THERAPY
     Dosage: 50 MCG, UNKNOWN
     Route: 065
  13. FOLIC ACID. [Concomitant]
     Active Substance: FOLIC ACID
     Indication: SUPPLEMENTATION THERAPY
     Dosage: UNK
     Route: 065
  14. CALCIUM [Concomitant]
     Active Substance: CALCIUM
     Indication: SUPPLEMENTATION THERAPY
     Dosage: 600 MG, UNKNOWN
     Route: 065

REACTIONS (2)
  - Off label use [Recovered/Resolved]
  - Headache [Not Recovered/Not Resolved]

NARRATIVE: CASE EVENT DATE: 20180528
